FAERS Safety Report 8019149 (Version 2)
Quarter: 2012Q4

REPORT INFORMATION
  Report Type: 
  Country: US (occurrence: US)
  Receive Date: 20110701
  Receipt Date: 20121023
  Transmission Date: 20130627
  Serious: Yes (Hospitalization)
  Sender: FDA-Public Use
  Company Number: US-AMGEN-USACT2011031742

PATIENT
  Age: 46 Year

DRUGS (7)
  1. FILGRASTIM [Suspect]
     Indication: BREAST CANCER
     Dosage: 5 mug/kg, UNK
     Route: 058
     Dates: start: 20100511
  2. PEGFILGRASTIM [Suspect]
     Indication: BREAST CANCER
     Dosage: 6 mg, UNK
     Dates: start: 20100511
  3. BEVACIZUMAB [Concomitant]
     Indication: BREAST CANCER
     Dosage: blinded
     Route: 042
     Dates: start: 20100511
  4. PACLITAXEL [Concomitant]
     Indication: BREAST CANCER
     Dosage: 80 mg/m2, UNK
     Route: 042
     Dates: start: 20100511
  5. CYCLOPHOSPHAMIDE [Concomitant]
     Indication: BREAST CANCER
     Dosage: 600 mg/m2, UNK
     Route: 042
     Dates: start: 20100511
  6. DOXORUBICIN [Concomitant]
     Indication: BREAST CANCER
     Dosage: 60 mg/m2, UNK
     Route: 042
     Dates: start: 20100511
  7. PREGABALIN [Concomitant]
     Dosage: 75 mg, tid
     Dates: start: 20100624

REACTIONS (1)
  - Syncope [Recovered/Resolved]
